FAERS Safety Report 7424075-0 (Version None)
Quarter: 2011Q2

REPORT INFORMATION
  Report Type: 
  Country: None (occurrence: None)
  Receive Date: 20110419
  Receipt Date: 20110405
  Transmission Date: 20111010
  Serious: No
  Sender: FDA-Public Use
  Company Number: CA-ELI_LILLY_AND_COMPANY-CA201104001188

PATIENT
  Sex: Female

DRUGS (13)
  1. ZYPREXA [Suspect]
     Dosage: 2.5 MG, BID
     Dates: start: 20001207
  2. DIVALPROEX SODIUM [Concomitant]
     Dosage: 250 MG, EACH MORNING
  3. DIVALPROEX SODIUM [Concomitant]
     Dosage: 500 MG, EACH EVENING
  4. EPIVAL [Concomitant]
     Dosage: 250 MG, EACH MORNING
     Dates: start: 20100929
  5. ZYPREXA [Suspect]
     Dosage: 2.5 MG, EACH EVENING
  6. ZYPREXA [Suspect]
     Dosage: 5 MG, EACH EVENING
  7. LEVOTHYROXINE SODIUM [Concomitant]
     Dosage: 88 UG, 4/W
  8. CLONAZEPAM [Concomitant]
     Dosage: 0.5 MG, PRN
  9. EPIVAL [Concomitant]
     Dosage: 500 MG, EACH EVENING
  10. LEVOTHYROXINE SODIUM [Concomitant]
     Dosage: 100 UG, QD
  11. LOXAPINE [Concomitant]
     Dosage: 10 MG, EACH EVENING
  12. ROSUVASTATIN CALCIUM [Concomitant]
     Dosage: 10 MG, QD
  13. RAMIPRIL [Concomitant]
     Dosage: 5 MG, QD

REACTIONS (6)
  - VIITH NERVE PARALYSIS [None]
  - MUSCULAR WEAKNESS [None]
  - RECTAL HAEMORRHAGE [None]
  - TYPE 2 DIABETES MELLITUS [None]
  - SLEEP DISORDER [None]
  - PAIN [None]
